FAERS Safety Report 17840498 (Version 1)
Quarter: 2020Q2

REPORT INFORMATION
  Report Type: Spontaneous
  Country: US (occurrence: US)
  Receive Date: 20200529
  Receipt Date: 20200529
  Transmission Date: 20200714
  Serious: Yes (Other)
  Sender: FDA-Public Use
  Company Number: US-PFIZER INC-2020211821

PATIENT
  Age: 61 Year
  Sex: Female
  Weight: 65.76 kg

DRUGS (7)
  1. IBRANCE [Suspect]
     Active Substance: PALBOCICLIB
     Indication: BREAST CANCER FEMALE
     Dosage: 125 MG, DAILY
     Route: 048
     Dates: start: 20180601
  2. CALCIUM CARBONATE. [Concomitant]
     Active Substance: CALCIUM CARBONATE
     Dosage: UNK
  3. LETROZOLE. [Concomitant]
     Active Substance: LETROZOLE
     Dosage: UNK
  4. VITAMIN D3 [Concomitant]
     Active Substance: CHOLECALCIFEROL
     Dosage: UNK
  5. CHROMIUM PICOLINATE [Concomitant]
     Active Substance: CHROMIUM PICOLINATE
     Dosage: UNK
  6. VITAMIN C [Concomitant]
     Active Substance: ASCORBIC ACID
     Dosage: UNK
  7. CINNAMON. [Concomitant]
     Active Substance: CINNAMON
     Dosage: UNK

REACTIONS (4)
  - Frequent bowel movements [Unknown]
  - Neoplasm progression [Unknown]
  - Fatigue [Unknown]
  - Dehydration [Unknown]
